FAERS Safety Report 5624719-X (Version None)
Quarter: 2008Q1

REPORT INFORMATION
  Report Type: 
  Country: None (occurrence: None)
  Receive Date: 20080213
  Receipt Date: 20080208
  Transmission Date: 20080703
  Serious: Yes (Disabling)
  Sender: FDA-Public Use
  Company Number: D0053215A

PATIENT
  Age: 33 Year
  Sex: Female

DRUGS (2)
  1. ARIXTRA [Suspect]
     Route: 058
     Dates: start: 20070124, end: 20070208
  2. COUMADIN [Concomitant]
     Route: 048
     Dates: start: 20070101

REACTIONS (6)
  - ARTERIAL OCCLUSIVE DISEASE [None]
  - ARTERIAL STENOSIS LIMB [None]
  - DEEP VEIN THROMBOSIS [None]
  - DRUG HYPERSENSITIVITY [None]
  - HEPARIN-INDUCED THROMBOCYTOPENIA [None]
  - THROMBOCYTOPENIA [None]
